FAERS Safety Report 8261708-3 (Version None)
Quarter: 2012Q2

REPORT INFORMATION
  Report Type: 
  Country: None (occurrence: None)
  Receive Date: 20120405
  Receipt Date: 20120328
  Transmission Date: 20120825
  Serious: Yes (Other)
  Sender: FDA-Public Use
  Company Number: US-BAYER-201034328NA

PATIENT
  Age: 40 Year
  Sex: Female
  Weight: 101.13 kg

DRUGS (1)
  1. MIRENA [Suspect]
     Indication: CONTRACEPTION
     Dosage: 20 MCG/24HR, CONT
     Route: 015
     Dates: start: 20060929, end: 20100901

REACTIONS (3)
  - UTERINE LEIOMYOMA [None]
  - PREGNANCY [None]
  - ABORTION SPONTANEOUS [None]
